FAERS Safety Report 4638944-8 (Version None)
Quarter: 2005Q2

REPORT INFORMATION
  Report Type: 
  Country: None (occurrence: None)
  Receive Date: 20050419
  Receipt Date: 20050330
  Transmission Date: 20051028
  Serious: Yes (Hospitalization)
  Sender: FDA-Public Use
  Company Number: JP-GLAXOSMITHKLINE-B0376469A

PATIENT
  Age: 82 Year
  Sex: Female
  Weight: 35 kg

DRUGS (6)
  1. PAXIL [Suspect]
     Indication: DEPRESSION
     Dosage: 10MG PER DAY
     Route: 048
     Dates: start: 20050309, end: 20050322
  2. ALPRAZOLAM [Suspect]
     Dosage: .4MG PER DAY
     Route: 048
     Dates: start: 20050303, end: 20050320
  3. GASTER [Concomitant]
     Dosage: 10MG PER DAY
     Route: 048
     Dates: start: 20050303
  4. BLOPRESS [Concomitant]
     Dosage: 4MG PER DAY
     Route: 048
     Dates: start: 20050314
  5. PURSENNID [Concomitant]
     Dosage: 24MG PER DAY
     Route: 048
     Dates: start: 20050314
  6. LOXONIN [Concomitant]
     Route: 048
     Dates: start: 20050314

REACTIONS (11)
  - ABASIA [None]
  - ASTHENIA [None]
  - BEDRIDDEN [None]
  - DYSSTASIA [None]
  - FALL [None]
  - HALLUCINATION, VISUAL [None]
  - HYPONATRAEMIA [None]
  - INAPPROPRIATE ANTIDIURETIC HORMONE SECRETION [None]
  - SOMNOLENCE [None]
  - SWELLING FACE [None]
  - URINARY RETENTION [None]
